FAERS Safety Report 12689994 (Version 1)
Quarter: 2016Q3

REPORT INFORMATION
  Report Type: Spontaneous
  Country: RU (occurrence: RU)
  Receive Date: 20160826
  Receipt Date: 20160826
  Transmission Date: 20161109
  Serious: Yes (Death)
  Sender: FDA-Public Use
  Company Number: RU-JNJFOC-20160820024

PATIENT
  Age: 78 Year
  Sex: Female

DRUGS (4)
  1. VINCRISTINE [Suspect]
     Active Substance: VINCRISTINE
     Indication: CASTLEMAN^S DISEASE
     Route: 065
  2. DOXORUBICIN HYDROCHLORIDE. [Suspect]
     Active Substance: DOXORUBICIN HYDROCHLORIDE
     Indication: CASTLEMAN^S DISEASE
     Route: 065
  3. CYCLOPHOSPHAMIDE. [Suspect]
     Active Substance: CYCLOPHOSPHAMIDE
     Indication: CASTLEMAN^S DISEASE
     Route: 065
  4. PREDNISONE. [Suspect]
     Active Substance: PREDNISONE
     Indication: CASTLEMAN^S DISEASE
     Route: 065

REACTIONS (3)
  - Off label use [Unknown]
  - Product use issue [Unknown]
  - Renal failure [Fatal]
